FAERS Safety Report 18906754 (Version 2)
Quarter: 2022Q2

REPORT INFORMATION
  Report Type: Report from Study
  Country: US (occurrence: US)
  Receive Date: 20210218
  Receipt Date: 20220411
  Transmission Date: 20220721
  Serious: Yes (Other)
  Sender: FDA-Public Use
  Company Number: US-BIOGEN-2021BI00978815

PATIENT
  Age: 58 Year
  Sex: Female
  Weight: 85.352 kg

DRUGS (9)
  1. TECFIDERA [Suspect]
     Active Substance: DIMETHYL FUMARATE
     Indication: Multiple sclerosis
     Dosage: STARTING DOSE
     Route: 048
  2. TECFIDERA [Suspect]
     Active Substance: DIMETHYL FUMARATE
     Dosage: MAINTENANCE DOSE
     Route: 048
     Dates: end: 20220119
  3. ATORVASTATIN [Concomitant]
     Active Substance: ATORVASTATIN
     Indication: Product used for unknown indication
     Dosage: 1 TABLET ORALLY ONCE A DAY
     Route: 048
  4. Losartan Potassium - HCTZ [Concomitant]
     Indication: Product used for unknown indication
     Dosage: 1 TABLET ORALLY ONCE A DAY - 100 - 12.5 MG
     Route: 048
  5. CHANTIX [Concomitant]
     Active Substance: VARENICLINE TARTRATE
     Indication: Product used for unknown indication
     Dosage: STARTING MONTH PAK 0.5 MG X11 AND 1 MG X 42 TABLET ORAL
     Route: 048
     Dates: end: 20220119
  6. DULOXETINE HYDROCHLORIDE [Concomitant]
     Active Substance: DULOXETINE HYDROCHLORIDE
     Indication: Fibromyalgia
     Dosage: ORALLY 1 TAB ONCE PER DAY FOR 1 WEEK THEN INCREASE TO 2 TABS
     Route: 048
     Dates: end: 20220119
  7. MELATONIN [Concomitant]
     Active Substance: MELATONIN
     Indication: Tremor
     Route: 065
  8. MELOXICAM [Concomitant]
     Active Substance: MELOXICAM
     Indication: Product used for unknown indication
     Route: 065
     Dates: end: 20190604
  9. PROPRANOLOL HYDROCHLORIDE [Concomitant]
     Active Substance: PROPRANOLOL HYDROCHLORIDE
     Indication: Product used for unknown indication
     Route: 048

REACTIONS (2)
  - Deep vein thrombosis [Unknown]
  - Abdominal discomfort [Unknown]

NARRATIVE: CASE EVENT DATE: 20200301
